FAERS Safety Report 21663374 (Version 1)
Quarter: 2022Q4

REPORT INFORMATION
  Report Type: Spontaneous
  Country: US (occurrence: None)
  Receive Date: 20221129
  Receipt Date: 20221129
  Transmission Date: 20230113
  Serious: Yes (Other)
  Sender: FDA-Public Use
  Company Number: None

PATIENT
  Age: 25 Year
  Sex: Female

DRUGS (1)
  1. NEXPLANON [Suspect]
     Active Substance: ETONOGESTREL
     Indication: Contraception
     Dates: start: 20221001, end: 20221129

REACTIONS (3)
  - Alopecia [None]
  - Androgenetic alopecia [None]
  - Alopecia [None]

NARRATIVE: CASE EVENT DATE: 20221129
